FAERS Safety Report 7366216-X (Version None)
Quarter: 2011Q1

REPORT INFORMATION
  Report Type: 
  Country: None (occurrence: None)
  Receive Date: 20110317
  Receipt Date: 20110317
  Transmission Date: 20110831
  Serious: No
  Sender: FDA-Public Use
  Company Number: None

PATIENT
  Age: 70 Year
  Sex: Female

DRUGS (2)
  1. AMLODIPINE [Suspect]
  2. HYDROCHLOROTHIAZIDE [Suspect]

REACTIONS (4)
  - COUGH [None]
  - DRUG INEFFECTIVE [None]
  - UNEVALUABLE EVENT [None]
  - FLUID RETENTION [None]
